FAERS Safety Report 13180909 (Version 1)
Quarter: 2017Q1

REPORT INFORMATION
  Report Type: Spontaneous
  Country: US (occurrence: US)
  Receive Date: 20170202
  Receipt Date: 20170202
  Transmission Date: 20170428
  Serious: No
  Sender: FDA-Public Use
  Company Number: US-SMITH AND NEPHEW, INC-2016SMT00394

PATIENT
  Age: 58 Year
  Sex: Female
  Weight: 54.42 kg

DRUGS (4)
  1. PENTOXIFYLLINE. [Concomitant]
     Active Substance: PENTOXIFYLLINE
  2. REGRANEX [Suspect]
     Active Substance: BECAPLERMIN
     Indication: WOUND
     Dosage: UNK, 1X/DAY
     Route: 061
     Dates: start: 201604, end: 201604
  3. REGRANEX [Suspect]
     Active Substance: BECAPLERMIN
     Dosage: UNK, 1X/DAY
     Route: 061
     Dates: start: 201604, end: 201605
  4. L-ARGININE [Concomitant]
     Active Substance: ARGININE

REACTIONS (2)
  - Off label use [Unknown]
  - Application site infection [Unknown]

NARRATIVE: CASE EVENT DATE: 201604
